FAERS Safety Report 9062476 (Version 2)
Quarter: 2023Q4

REPORT INFORMATION
  Report Type: Spontaneous
  Country: DK (occurrence: DK)
  Receive Date: 20130213
  Receipt Date: 20231017
  Transmission Date: 20240110
  Serious: Yes (Death, Hospitalization, Other)
  Sender: FDA-Public Use
  Company Number: DK-ACCORD-016323

PATIENT
  Age: 34 Year
  Sex: Male
  Weight: 90.0 kg

DRUGS (15)
  1. QUETIAPINE FUMARATE [Suspect]
     Active Substance: QUETIAPINE FUMARATE
     Indication: Depression
     Dosage: 100 MG,BID
  2. ETODOLAC [Suspect]
     Active Substance: ETODOLAC
     Indication: Product used for unknown indication
  3. PANTOPRAZOLE SODIUM [Suspect]
     Active Substance: PANTOPRAZOLE SODIUM
     Indication: Product used for unknown indication
  4. HALOPERIDOL [Suspect]
     Active Substance: HALOPERIDOL
     Indication: Anxiety
  5. OXYCODONE [Suspect]
     Active Substance: OXYCODONE
     Indication: Back pain
  6. NITRAZEPAM [Suspect]
     Active Substance: NITRAZEPAM
     Indication: Depression
  7. VENLAFAXINE [Suspect]
     Active Substance: VENLAFAXINE HYDROCHLORIDE
     Indication: Product used for unknown indication
     Dosage: 150 MG,BID
     Dates: start: 200905, end: 201101
  8. PREGABALIN [Suspect]
     Active Substance: PREGABALIN
     Indication: Arthralgia
  9. DIAZEPAM [Suspect]
     Active Substance: DIAZEPAM
     Indication: Anxiety
  10. NORDAZEPAM [Suspect]
     Active Substance: NORDAZEPAM
     Indication: Product used for unknown indication
  11. INSULIN DETEMIR [Concomitant]
     Active Substance: INSULIN DETEMIR
     Indication: Type 1 diabetes mellitus
     Dosage: 10 U
  12. PENICILLIN V [Concomitant]
     Active Substance: PENICILLIN V
     Indication: Pneumonia
     Dosage: 1 MILLION IU
  13. SIMVASTATIN [Concomitant]
     Active Substance: SIMVASTATIN
  14. ZOLPIDEM [Concomitant]
     Active Substance: ZOLPIDEM TARTRATE
  15. VENLAFAXINE [Suspect]
     Active Substance: VENLAFAXINE HYDROCHLORIDE
     Indication: Product used for unknown indication
     Dosage: 150 MG,BID
     Dates: start: 200511, end: 200707

REACTIONS (10)
  - Toxicity to various agents [Fatal]
  - Drug level increased [Unknown]
  - Metabolic disorder [Unknown]
  - Pulmonary oedema [Fatal]
  - Infection [Unknown]
  - Prerenal failure [Fatal]
  - Hepatic steatosis [Unknown]
  - Ventricular hypertrophy [Fatal]
  - Dehydration [Fatal]
  - Pneumonia [Unknown]

NARRATIVE: CASE EVENT DATE: 20110101
